FAERS Safety Report 6638256-7 (Version None)
Quarter: 2010Q1

REPORT INFORMATION
  Report Type: 
  Country: None (occurrence: None)
  Receive Date: 20100316
  Receipt Date: 20100316
  Transmission Date: 20100710
  Serious: Yes (Death, Hospitalization)
  Sender: FDA-Public Use
  Company Number: None

PATIENT
  Age: 70 Year
  Sex: Male
  Weight: 82.5 kg

DRUGS (1)
  1. AZITHROMYCIN [Suspect]
     Indication: RASH
     Dosage: 500 MG FIRST DAY 250 MG DAILY ORAL 047
     Route: 048

REACTIONS (7)
  - BRAIN OEDEMA [None]
  - COAGULOPATHY [None]
  - JAUNDICE [None]
  - LETHARGY [None]
  - MENTAL STATUS CHANGES [None]
  - RASH [None]
  - RENAL FAILURE ACUTE [None]
